FAERS Safety Report 9290977 (Version 1)
Quarter: 2013Q2

REPORT INFORMATION
  Report Type: Other
  Country: GB (occurrence: GB)
  Receive Date: 20130515
  Receipt Date: 20130515
  Transmission Date: 20140414
  Serious: Yes (Hospitalization, Other)
  Sender: FDA-Public Use
  Company Number: GB-ACTAVIS-2013-08110

PATIENT
  Sex: Female

DRUGS (1)
  1. FINASTERIDE (UNKNOWN) [Suspect]
     Indication: PRODUCT USED FOR UNKNOWN INDICATION
     Dosage: UNK
     Route: 065

REACTIONS (5)
  - Renal failure [Recovered/Resolved]
  - Blindness transient [Recovered/Resolved]
  - Accidental exposure to product [Recovered/Resolved]
  - Drug dispensing error [Unknown]
  - Medication error [Recovered/Resolved]
